FAERS Safety Report 7112739-8 (Version None)
Quarter: 2010Q4

REPORT INFORMATION
  Report Type: 
  Country: None (occurrence: None)
  Receive Date: 20101119
  Receipt Date: 20101115
  Transmission Date: 20110411
  Serious: Yes (Death)
  Sender: FDA-Public Use
  Company Number: KR-BRISTOL-MYERS SQUIBB COMPANY-15357304

PATIENT
  Age: 57 Year
  Sex: Male

DRUGS (3)
  1. CETUXIMAB [Suspect]
     Indication: GASTROOESOPHAGEAL CANCER
     Dosage: 5MG/ML RECENT INF:03SEP2010
     Route: 042
     Dates: start: 20100903, end: 20100903
  2. CISPLATIN [Suspect]
     Indication: GASTROOESOPHAGEAL CANCER
     Dosage: RECENT INF:03SEP2010; ON DAY ONE OF CYCLE
     Route: 042
     Dates: start: 20100903, end: 20100903
  3. XELODA [Suspect]
     Indication: GASTROOESOPHAGEAL CANCER
     Dosage: FORM=TABLET ON DAY 1-15 DISCONTINUED ON 15SEP10
     Route: 048
     Dates: start: 20100903, end: 20100912

REACTIONS (1)
  - SEPSIS [None]
